FAERS Safety Report 20886427 (Version 1)
Quarter: 2022Q2

REPORT INFORMATION
  Report Type: Spontaneous
  Country: CN (occurrence: None)
  Receive Date: 20220527
  Receipt Date: 20220527
  Transmission Date: 20220721
  Serious: Yes (Hospitalization)
  Sender: FDA-Public Use
  Company Number: CN-Eisai Medical Research-EC-2022-115284

PATIENT
  Age: 51 Year
  Sex: Female
  Weight: 55 kg

DRUGS (5)
  1. HALAVEN [Suspect]
     Active Substance: ERIBULIN MESYLATE
     Indication: Gastric cancer
     Route: 041
     Dates: start: 20220430, end: 20220430
  2. HALAVEN [Suspect]
     Active Substance: ERIBULIN MESYLATE
     Route: 041
     Dates: start: 20220507, end: 20220507
  3. LENVIMA [Suspect]
     Active Substance: LENVATINIB
     Indication: Gastric cancer
     Route: 048
     Dates: start: 20220430
  4. ENVAFOLIMAB [Suspect]
     Active Substance: ENVAFOLIMAB
     Indication: Gastric cancer
     Route: 041
     Dates: start: 20220430, end: 20220430
  5. ENVAFOLIMAB [Suspect]
     Active Substance: ENVAFOLIMAB
     Route: 041
     Dates: start: 20220507, end: 20220507

REACTIONS (1)
  - Myelosuppression [Not Recovered/Not Resolved]

NARRATIVE: CASE EVENT DATE: 20220503
